FAERS Safety Report 6574765 (Version 6)
Quarter: 2017Q1

REPORT INFORMATION
  Report Type: Spontaneous
  Country: JP (occurrence: JP)
  Receive Date: 20080310
  Receipt Date: 20170320
  Transmission Date: 20170429
  Serious: Yes (Death, Life-Threatening, Hospitalization, Other)
  Sender: FDA-Public Use
  Company Number: PHBS2007JP17403

PATIENT
  Age: 66 Year
  Sex: Male
  Weight: 66 kg

DRUGS (2)
  1. GLIVEC [Suspect]
     Active Substance: IMATINIB MESYLATE
     Dosage: 400 MG, QD
     Route: 048
     Dates: start: 20061213, end: 20071026
  2. GLIVEC [Suspect]
     Active Substance: IMATINIB MESYLATE
     Indication: GASTROINTESTINAL STROMAL TUMOUR
     Dosage: 400 MG, QD
     Route: 048
     Dates: start: 20060922

REACTIONS (24)
  - Myocardial infarction [Fatal]
  - Haemoglobin decreased [Unknown]
  - Cold sweat [Unknown]
  - Malignant neoplasm progression [Unknown]
  - Abdominal wall disorder [Unknown]
  - Ascites [Unknown]
  - Abdominal pain [Unknown]
  - Shock haemorrhagic [Unknown]
  - White blood cell count decreased [Unknown]
  - Muscle rigidity [Unknown]
  - Loss of consciousness [Unknown]
  - Postoperative ileus [Recovering/Resolving]
  - C-reactive protein increased [Recovered/Resolved]
  - Hypokalaemia [Unknown]
  - Shock [Unknown]
  - Blood pressure decreased [Unknown]
  - Anaemia [Unknown]
  - Platelet count decreased [Unknown]
  - Tumour necrosis [Unknown]
  - Metastases to liver [Unknown]
  - Urinary incontinence [Unknown]
  - Tumour haemorrhage [Recovering/Resolving]
  - Peritoneal haemorrhage [Unknown]
  - Blood alkaline phosphatase increased [Unknown]

NARRATIVE: CASE EVENT DATE: 20060925
